FAERS Safety Report 5986906-0 (Version None)
Quarter: 2008Q4

REPORT INFORMATION
  Report Type: 
  Country: None (occurrence: None)
  Receive Date: 20081209
  Receipt Date: 20080904
  Transmission Date: 20090506
  Serious: No
  Sender: FDA-Public Use
  Company Number: US-AMGEN-KDL305839

PATIENT
  Sex: Female

DRUGS (3)
  1. ENBREL [Suspect]
     Indication: RHEUMATOID ARTHRITIS
     Route: 058
     Dates: start: 20080523
  2. METHOTREXATE [Concomitant]
     Route: 048
  3. ARAVA [Concomitant]

REACTIONS (5)
  - EAR CONGESTION [None]
  - POSTNASAL DRIP [None]
  - PRODUCTIVE COUGH [None]
  - SINUS HEADACHE [None]
  - SINUSITIS [None]
